FAERS Safety Report 24355975 (Version 2)
Quarter: 2024Q4

REPORT INFORMATION
  Report Type: Spontaneous
  Country: IT (occurrence: IT)
  Receive Date: 20240924
  Receipt Date: 20241018
  Transmission Date: 20250115
  Serious: Yes (Other)
  Sender: TEVA
  Company Number: None

PATIENT
  Age: 56 Year
  Sex: Female
  Weight: 55 kg

DRUGS (4)
  1. PACLITAXEL [Suspect]
     Active Substance: PACLITAXEL
     Indication: Breast cancer
     Dosage: WEEKLY CBDCA+PACLI PROTOCOL + PEMBROLIZUMAB Q21  ; PACLITAXEL TEVA
     Route: 042
     Dates: start: 202406
  2. METOCLOPRAMIDE [Concomitant]
     Active Substance: METOCLOPRAMIDE
     Indication: Chemotherapy side effect prophylaxis
     Dosage: METOCLOPRAMIDE 10MG IN 100ML NACL
     Route: 042
     Dates: start: 202406
  3. CARBOPLATIN [Concomitant]
     Active Substance: CARBOPLATIN
     Indication: Breast cancer
     Dosage: CARBOPLATIN 205MG IN 500ML GLUCOSE 5%
     Route: 042
  4. DEXAMETHASONE [Concomitant]
     Active Substance: DEXAMETHASONE
     Indication: Steroid therapy
     Dosage: DEXA 8 MG IN 100 ML NACL
     Route: 042
     Dates: start: 202406

REACTIONS (3)
  - Hypoxia [Recovered/Resolved]
  - Dyspnoea [Recovered/Resolved]
  - Laryngospasm [Recovered/Resolved]

NARRATIVE: CASE EVENT DATE: 20240814
